FAERS Safety Report 8459144-X (Version None)
Quarter: 2012Q2

REPORT INFORMATION
  Report Type: 
  Country: None (occurrence: None)
  Receive Date: 20120622
  Receipt Date: 20120611
  Transmission Date: 20120825
  Serious: Yes (Other)
  Sender: FDA-Public Use
  Company Number: IT-TEVA-342690ISR

PATIENT
  Age: 44 Year
  Sex: Male

DRUGS (3)
  1. RIBAVIRIN [Suspect]
     Dosage: 1600 MILLIGRAM; 1600 MG/DAY
     Route: 065
  2. RIBAVIRIN [Suspect]
     Indication: HEPATITIS C
     Dosage: 1200 MILLIGRAM; 1200 MG/DAY; INCREASED TO 1600 MG/DAY DURING WK12
     Route: 065
  3. PEGINTERFERON ALFA-2A [Suspect]
     Indication: HEPATITIS C
     Dosage: 180 MICROGRAM/WEEK
     Route: 065

REACTIONS (1)
  - PULMONARY TUBERCULOSIS [None]
